FAERS Safety Report 25035901 (Version 1)
Quarter: 2025Q1

REPORT INFORMATION
  Report Type: Spontaneous
  Country: GB (occurrence: GB)
  Receive Date: 20250304
  Receipt Date: 20250304
  Transmission Date: 20250409
  Serious: Yes (Other)
  Sender: RELIANCE GENEMEDIX
  Company Number: GB-Reliance-000443

PATIENT
  Age: 8 Decade
  Sex: Male

DRUGS (3)
  1. CAPECITABINE [Suspect]
     Active Substance: CAPECITABINE
     Indication: Cholangiocarcinoma
     Dosage: 1250 MG/M2 TWO TIMES PER DAY ON DAYS 1-14 OF A 21-DAY CYCLE
     Route: 048
  2. CAPECITABINE [Suspect]
     Active Substance: CAPECITABINE
     Indication: Metastases to nervous system
     Dosage: 1250 MG/M2 TWO TIMES PER DAY ON DAYS 1-14 OF A 21-DAY CYCLE
     Route: 048
  3. CAPECITABINE [Suspect]
     Active Substance: CAPECITABINE
     Indication: Tumour invasion
     Dosage: 1250 MG/M2 TWO TIMES PER DAY ON DAYS 1-14 OF A 21-DAY CYCLE
     Route: 048

REACTIONS (2)
  - IIIrd nerve paralysis [Recovered/Resolved]
  - Hordeolum [Recovered/Resolved]
